APPROVED DRUG PRODUCT: HEPARIN SODIUM 1,000 UNITS IN DEXTROSE 5% IN PLASTIC CONTAINER
Active Ingredient: HEPARIN SODIUM
Strength: 200 UNITS/100ML
Dosage Form/Route: INJECTABLE;INJECTION
Application: N019130 | Product #001
Applicant: MCGAW INC
Approved: Dec 31, 1984 | RLD: No | RS: No | Type: DISCN